FAERS Safety Report 19056900 (Version 1)
Quarter: 2021Q1

REPORT INFORMATION
  Report Type: Spontaneous
  Country: CH (occurrence: CH)
  Receive Date: 20210325
  Receipt Date: 20210325
  Transmission Date: 20210420
  Serious: Yes (Hospitalization, Other)
  Sender: FDA-Public Use
  Company Number: CH-NOVOPROD-796147

PATIENT
  Age: 56 Year
  Sex: Male
  Weight: 116 kg

DRUGS (8)
  1. OZEMPIC [Suspect]
     Active Substance: SEMAGLUTIDE
     Dosage: 0.5 MG, QW
     Route: 058
     Dates: start: 20210112, end: 20210209
  2. ASS CARDIO [Concomitant]
     Active Substance: ASPIRIN
     Dosage: 1?0?0?0 (MORNINGS)
     Route: 065
  3. DULOXETIN +PHARMA [Concomitant]
     Active Substance: DULOXETINE HYDROCHLORIDE
     Dosage: 1?0?0?0 (MORNINGS)
     Route: 065
  4. METFORMIN [Concomitant]
     Active Substance: METFORMIN HYDROCHLORIDE
     Dosage: 1?0?1?0 (MORNINGS AND EVENINGS)
     Route: 065
  5. OZEMPIC [Suspect]
     Active Substance: SEMAGLUTIDE
     Indication: TYPE 2 DIABETES MELLITUS
     Dosage: UNK
     Route: 058
  6. CO IRBESARTAN [IRBESARTAN] [Concomitant]
     Dosage: 300/25MG 1?0?0?0 (MORNINGS)
     Route: 065
  7. LAITEA [Concomitant]
     Dosage: 0?0?1?0 (EVENINGS)
     Route: 065
  8. ROSUVASTATIN. [Concomitant]
     Active Substance: ROSUVASTATIN
     Dosage: 0?0?1?0 (EVENINGS)
     Route: 065

REACTIONS (7)
  - Syncope [Unknown]
  - Nausea [Unknown]
  - Diarrhoea [Recovered/Resolved with Sequelae]
  - Abdominal pain [Unknown]
  - Facial bones fracture [Recovered/Resolved with Sequelae]
  - Dehydration [Unknown]
  - Enteritis [Unknown]

NARRATIVE: CASE EVENT DATE: 202102
